FAERS Safety Report 23457348 (Version 1)
Quarter: 2024Q1

REPORT INFORMATION
  Report Type: Spontaneous
  Country: CN (occurrence: CN)
  Receive Date: 20240130
  Receipt Date: 20240130
  Transmission Date: 20240410
  Serious: Yes (Other)
  Sender: FDA-Public Use
  Company Number: None

PATIENT
  Age: 1 Year
  Sex: Male

DRUGS (2)
  1. CYCLOPHOSPHAMIDE [Suspect]
     Active Substance: CYCLOPHOSPHAMIDE
     Indication: Aplastic anaemia
     Dosage: 0.7 G, ONE TIME IN ONE DAY
     Route: 041
     Dates: start: 20240115, end: 20240116
  2. TROPISETRON HYDROCHLORIDE [Suspect]
     Active Substance: TROPISETRON HYDROCHLORIDE
     Indication: Antiemetic supportive care
     Dosage: UNK
     Route: 065
     Dates: start: 20240115, end: 20240116

REACTIONS (6)
  - Aplastic anaemia [Unknown]
  - Condition aggravated [Unknown]
  - Symptom recurrence [Recovering/Resolving]
  - Nausea [Recovering/Resolving]
  - Vomiting [Recovering/Resolving]
  - Decreased appetite [Unknown]

NARRATIVE: CASE EVENT DATE: 20240117
